FAERS Safety Report 6670993-0 (Version None)
Quarter: 2010Q2

REPORT INFORMATION
  Report Type: 
  Country: None (occurrence: None)
  Receive Date: 20100407
  Receipt Date: 20100330
  Transmission Date: 20101027
  Serious: Yes (Other)
  Sender: FDA-Public Use
  Company Number: IE-BAXTER-2010BH002037

PATIENT
  Age: 52 Year
  Sex: Male

DRUGS (13)
  1. GAMMAGARD LIQUID [Suspect]
     Indication: RHEUMATOID ARTHRITIS
     Route: 042
     Dates: start: 20091117
  2. GAMMAGARD LIQUID [Suspect]
     Indication: OFF LABEL USE
     Route: 042
     Dates: start: 20091117
  3. ANTINEOPLASTIC AND IMMUNOSUPPRESSIVE AGENTS [Concomitant]
  4. ZOMETA [Concomitant]
  5. VALTREX [Concomitant]
  6. FLUCONAZOLE [Concomitant]
  7. ZOTON [Concomitant]
  8. FOLIC ACID [Concomitant]
  9. SYMBICORT [Concomitant]
  10. VENTOLIN [Concomitant]
  11. NU-SEALS [Concomitant]
  12. SEPTRIN [Concomitant]
  13. COLOMYCIN [Concomitant]

REACTIONS (3)
  - CHILLS [None]
  - FEELING COLD [None]
  - HYPERSENSITIVITY [None]
